FAERS Safety Report 25393446 (Version 1)
Quarter: 2025Q2

REPORT INFORMATION
  Report Type: Spontaneous
  Country: US (occurrence: US)
  Receive Date: 20250604
  Receipt Date: 20250604
  Transmission Date: 20250717
  Serious: No
  Sender: BRISTOL-MYERS SQUIBB COMPANY
  Company Number: US-BRISTOL-MYERS SQUIBB COMPANY-2025-077146

PATIENT
  Age: 87 Year
  Sex: Female
  Weight: 74 kg

DRUGS (1)
  1. ELIQUIS [Suspect]
     Active Substance: APIXABAN
     Indication: Stent placement
     Route: 048

REACTIONS (4)
  - Product packaging quantity issue [Unknown]
  - Visual impairment [Unknown]
  - Condition aggravated [Unknown]
  - Off label use [Unknown]
